FAERS Safety Report 11307120 (Version 1)
Quarter: 2015Q3

REPORT INFORMATION
  Report Type: Spontaneous
  Country: DE (occurrence: DE)
  Receive Date: 20150723
  Receipt Date: 20150723
  Transmission Date: 20151125
  Serious: Yes (Disabling)
  Sender: FDA-Public Use
  Company Number: DE-ABBVIE-15P-062-1432396-00

PATIENT
  Age: 57 Year
  Sex: Female

DRUGS (18)
  1. NOVAMINSULFON [Interacting]
     Active Substance: METAMIZOLE
     Indication: BACK PAIN
     Route: 048
  2. NEUROTRAT S [Interacting]
     Active Substance: PYRIDOXINE\THIAMINE
     Indication: VITAMIN B COMPLEX DEFICIENCY
     Dosage: 0-0-1; ONCE IN THE EVENING AT 8:00 P.M
     Route: 048
     Dates: start: 201501, end: 201501
  3. HYDROMORPHONE [Interacting]
     Active Substance: HYDROMORPHONE
     Indication: BACK PAIN
     Dosage: 2-0-1
     Route: 048
  4. HYDROMORPHONE [Interacting]
     Active Substance: HYDROMORPHONE
     Indication: FIBROMYALGIA
  5. TRIMIPRAMIN [Interacting]
     Active Substance: TRIMIPRAMINE MALEATE
     Indication: SLEEP DISORDER
     Dosage: 5-10 DROPS AS NEEDED; EITHER ZOPICLON OR TRIMIPRAMIN
     Route: 048
  6. JODID [Interacting]
     Active Substance: IODINE
     Indication: IODINE DEFICIENCY
     Dosage: 1-0-0
     Route: 048
  7. RAMIGAMMA [Interacting]
     Active Substance: RAMIPRIL
     Indication: BLOOD PRESSURE FLUCTUATION
     Dosage: FORM STRENGTH: 5/25 MG
     Route: 048
  8. DIMETICONE [Interacting]
     Active Substance: DIMETHICONE
     Indication: FLATULENCE
     Route: 048
  9. KREON 25000 [Interacting]
     Active Substance: PANCRELIPASE
     Indication: LIPID METABOLISM DISORDER
  10. SPASMEX [Interacting]
     Active Substance: TROSPIUM CHLORIDE
     Indication: BLADDER DISORDER
     Dosage: 1-0-1
     Route: 048
  11. MAXALT [Interacting]
     Active Substance: RIZATRIPTAN BENZOATE
     Indication: MIGRAINE
     Route: 048
  12. OMEPRAZOL [Interacting]
     Active Substance: OMEPRAZOLE
     Indication: GASTRIC PH DECREASED
     Dosage: 1-0-1 (DAILY DOSE: 80 MG)
     Route: 048
  13. MOVICOL [Interacting]
     Active Substance: POLYETHYLENE GLYCOL 3350\POTASSIUM CHLORIDE\SODIUM BICARBONATE\SODIUM CHLORIDE
     Indication: CONSTIPATION
     Route: 048
  14. KREON 25000 [Suspect]
     Active Substance: PANCRELIPASE
     Indication: ENZYME SUPPLEMENTATION
     Route: 048
  15. CRANBERRY JUICE EXTRACT [Interacting]
     Active Substance: CRANBERRY JUICE
     Indication: CYSTITIS
     Dosage: 200MG DAILY; 0-1-0
     Route: 048
  16. ZOPICLON [Interacting]
     Active Substance: ZOPICLONE
     Indication: SLEEP DISORDER
     Dosage: 7.5MG DAILY; AS REQUIRED AT NIGHT; 0-0-1
     Route: 048
  17. ORTOTON 750 MG [Interacting]
     Active Substance: METHOCARBAMOL
     Indication: MYALGIA
     Dosage: 2-2-2
     Route: 048
  18. RAMILICH [Interacting]
     Active Substance: RAMIPRIL
     Indication: BLOOD PRESSURE FLUCTUATION
     Route: 048

REACTIONS (3)
  - Drug interaction [Unknown]
  - Balance disorder [Recovered/Resolved]
  - Dizziness [Recovered/Resolved]

NARRATIVE: CASE EVENT DATE: 20150123
